FAERS Safety Report 8309166-4 (Version None)
Quarter: 2012Q2

REPORT INFORMATION
  Report Type: 
  Country: None (occurrence: None)
  Receive Date: 20120424
  Receipt Date: 20120412
  Transmission Date: 20120825
  Serious: Yes (Other)
  Sender: FDA-Public Use
  Company Number: US-BAXTER-2012BAX003053

PATIENT
  Sex: Male
  Weight: 81.82 kg

DRUGS (11)
  1. VALTREX [Concomitant]
     Route: 048
     Dates: start: 20090101
  2. CLARINEX-D [Concomitant]
     Indication: CHRONIC SINUSITIS
     Route: 065
     Dates: end: 20120401
  3. GAMMAGARD LIQUID [Suspect]
     Dosage: 15-20 GRAMS
     Route: 042
     Dates: start: 20120404, end: 20120404
  4. VITAMIN B-12 [Concomitant]
     Route: 048
  5. CYANOCOBALAMIN [Concomitant]
     Route: 065
  6. CELEBREX [Concomitant]
     Route: 048
  7. LEVOXYL [Concomitant]
     Route: 048
  8. GAMMAGARD LIQUID [Suspect]
     Dosage: 15-20 GRAMS
     Route: 042
     Dates: start: 20110101
  9. GAMMAGARD LIQUID [Suspect]
     Dosage: 15-20 GRAMS
     Route: 042
     Dates: start: 20120119, end: 20120119
  10. AMLODIPINE BESYLATE [Concomitant]
     Route: 048
  11. NEXIUM [Concomitant]
     Route: 048

REACTIONS (6)
  - EMOTIONAL DISTRESS [None]
  - ABDOMINAL PAIN UPPER [None]
  - INFLUENZA [None]
  - FATIGUE [None]
  - HEADACHE [None]
  - DIARRHOEA [None]
